FAERS Safety Report 9639260 (Version 1)
Quarter: 2013Q4

REPORT INFORMATION
  Report Type: Spontaneous
  Country: US (occurrence: None)
  Receive Date: 20131011
  Receipt Date: 20131011
  Transmission Date: 20140711
  Serious: Yes (Other)
  Sender: FDA-Public Use
  Company Number: 2013037237

PATIENT
  Age: 47 Year
  Sex: Female

DRUGS (1)
  1. PRIVIGEN (IMMUNE GLOBULIN INTRAVENOUS (HUMAN) 10% LIQUID) [Suspect]
     Dates: start: 2012

REACTIONS (9)
  - Headache [None]
  - Neck pain [None]
  - Nausea [None]
  - Malaise [None]
  - Back pain [None]
  - Musculoskeletal stiffness [None]
  - Pyrexia [None]
  - Meningitis aseptic [None]
  - Blood pressure increased [None]
